FAERS Safety Report 13653015 (Version 1)
Quarter: 2017Q2

REPORT INFORMATION
  Report Type: Spontaneous
  Country: US (occurrence: US)
  Receive Date: 20170614
  Receipt Date: 20170614
  Transmission Date: 20170830
  Serious: Yes (Other)
  Sender: FDA-Public Use
  Company Number: US-ROCHE-776247

PATIENT
  Sex: Female

DRUGS (1)
  1. XELODA [Suspect]
     Active Substance: CAPECITABINE
     Indication: BREAST CANCER
     Route: 048

REACTIONS (8)
  - Arthralgia [Unknown]
  - Erythema [Recovered/Resolved]
  - Neuropathy peripheral [Recovering/Resolving]
  - Peripheral swelling [Unknown]
  - Product quality issue [Unknown]
  - Crying [Unknown]
  - Adverse drug reaction [Unknown]
  - Burning sensation [Recovered/Resolved]

NARRATIVE: CASE EVENT DATE: 20110428
